FAERS Safety Report 10071757 (Version 1)
Quarter: 2014Q2

REPORT INFORMATION
  Report Type: Report from Study
  Country: US (occurrence: US)
  Receive Date: 20140411
  Receipt Date: 20140411
  Transmission Date: 20141212
  Serious: Yes (Hospitalization)
  Sender: FDA-Public Use
  Company Number: US-ROCHE-1380887

PATIENT
  Sex: Male

DRUGS (11)
  1. VALCYTE [Suspect]
     Indication: IMMUNOSUPPRESSION
     Route: 048
  2. VALCYTE [Suspect]
     Indication: RENAL TRANSPLANT
  3. CELLCEPT [Suspect]
     Indication: PRODUCT USED FOR UNKNOWN INDICATION
     Route: 048
  4. CRESTOR [Concomitant]
  5. NYSTATIN [Concomitant]
  6. PROGRAF [Concomitant]
     Route: 065
  7. BACTRIM [Concomitant]
     Route: 065
  8. PROTONIX (OMEPRAZOLE) [Concomitant]
     Route: 065
  9. PREDNISONE [Concomitant]
     Route: 065
  10. INSULIN [Concomitant]
     Route: 065
  11. VICODIN [Concomitant]

REACTIONS (3)
  - Cytomegalovirus infection [Unknown]
  - Malaise [Unknown]
  - Urinary incontinence [Unknown]
